FAERS Safety Report 4686686-5 (Version None)
Quarter: 2005Q2

REPORT INFORMATION
  Report Type: 
  Country: None (occurrence: None)
  Receive Date: 20050606
  Receipt Date: 20050524
  Transmission Date: 20051028
  Serious: Yes (Hospitalization)
  Sender: FDA-Public Use
  Company Number: JP_050406296

PATIENT
  Age: 66 Year
  Sex: Female

DRUGS (1)
  1. ZYPREXA [Suspect]
     Indication: SCHIZOPHRENIA
     Dosage: 60 MG
     Dates: start: 20050201, end: 20050201

REACTIONS (8)
  - DYSPHAGIA [None]
  - INSOMNIA [None]
  - INTENTIONAL MISUSE [None]
  - OVERDOSE [None]
  - PNEUMONIA ASPIRATION [None]
  - PYREXIA [None]
  - TARDIVE DYSKINESIA [None]
  - URINARY RETENTION [None]
